FAERS Safety Report 4869199-7 (Version None)
Quarter: 2005Q4

REPORT INFORMATION
  Report Type: 
  Country: None (occurrence: None)
  Receive Date: 20051228
  Receipt Date: 20051228
  Transmission Date: 20060501
  Serious: Yes (Other)
  Sender: FDA-Public Use
  Company Number: None

PATIENT
  Age: 51 Year
  Sex: Female
  Weight: 67.586 kg

DRUGS (6)
  1. PRIMIDONE [Suspect]
     Indication: EPILEPSY
     Dosage: 250 MG PO TID
     Route: 048
     Dates: start: 20050620
  2. DEPAKOTE [Concomitant]
  3. TOPAMAX [Concomitant]
  4. SEROQUEL [Concomitant]
  5. FOLIC ACID [Concomitant]
  6. MUTIVITAMIN [Concomitant]

REACTIONS (3)
  - ASTHENIA [None]
  - DEPRESSED LEVEL OF CONSCIOUSNESS [None]
  - MEMORY IMPAIRMENT [None]
